FAERS Safety Report 16965884 (Version 1)
Quarter: 2019Q4

REPORT INFORMATION
  Report Type: Spontaneous
  Country: US (occurrence: US)
  Receive Date: 20191028
  Receipt Date: 20191028
  Transmission Date: 20200122
  Serious: Yes (Other)
  Sender: FDA-Public Use
  Company Number: US-PFIZER INC-2019459140

PATIENT
  Age: 58 Year
  Sex: Female

DRUGS (3)
  1. MOBIC [Concomitant]
     Active Substance: MELOXICAM
     Dosage: UNK
  2. XELJANZ XR [Suspect]
     Active Substance: TOFACITINIB CITRATE
     Indication: RHEUMATOID ARTHRITIS
     Dosage: 11 MG, DAILY
     Route: 048
     Dates: start: 201905
  3. METHOTREXATE. [Concomitant]
     Active Substance: METHOTREXATE
     Dosage: UNK

REACTIONS (4)
  - Blood test abnormal [Unknown]
  - Product dose omission [Unknown]
  - Pain [Not Recovered/Not Resolved]
  - Rheumatoid arthritis [Unknown]
